FAERS Safety Report 21897197 (Version 1)
Quarter: 2023Q1

REPORT INFORMATION
  Report Type: Spontaneous
  Country: US (occurrence: None)
  Receive Date: 20230120
  Receipt Date: 20230120
  Transmission Date: 20230417
  Serious: Yes (Death)
  Sender: FDA-Public Use
  Company Number: None

PATIENT
  Age: 64 Year
  Sex: Female

DRUGS (1)
  1. ERLOTINIB [Suspect]
     Active Substance: ERLOTINIB
     Dosage: 150MG EVERY DAY BY MOUTH?
     Route: 048
     Dates: start: 202210

REACTIONS (1)
  - Death [None]

NARRATIVE: CASE EVENT DATE: 20221231
